FAERS Safety Report 5223026-7 (Version None)
Quarter: 2007Q1

REPORT INFORMATION
  Report Type: 
  Country: None (occurrence: None)
  Receive Date: 20070129
  Receipt Date: 20070118
  Transmission Date: 20070707
  Serious: Yes (Hospitalization)
  Sender: FDA-Public Use
  Company Number: DE-PFIZER INC-2006153636

PATIENT
  Sex: Female
  Weight: 58 kg

DRUGS (4)
  1. ZELDOX (CAPSULES) [Suspect]
     Indication: MANIA
     Dosage: DAILY DOSE:40MG
     Route: 048
     Dates: start: 20060908, end: 20060918
  2. ZELDOX (CAPSULES) [Suspect]
     Indication: BIPOLAR DISORDER
  3. FLUOXETINE [Concomitant]
     Route: 048
     Dates: start: 20060531, end: 20060901
  4. MIRTAZAPINE [Concomitant]
     Route: 048
     Dates: start: 20060706, end: 20060901

REACTIONS (1)
  - NEURODERMATITIS [None]
